FAERS Safety Report 17112294 (Version 3)
Quarter: 2020Q4

REPORT INFORMATION
  Report Type: Spontaneous
  Country: RO (occurrence: RO)
  Receive Date: 20191204
  Receipt Date: 20201105
  Transmission Date: 20210113
  Serious: Yes (Other)
  Sender: FDA-Public Use
  Company Number: RO-PFIZER INC-2019521478

PATIENT
  Age: 36 Year
  Sex: Female

DRUGS (2)
  1. XELJANZ [Suspect]
     Active Substance: TOFACITINIB CITRATE
     Dosage: 5 MG, 2X/DAY
     Dates: start: 20180802
  2. MTX [Concomitant]
     Active Substance: METHOTREXATE SODIUM
     Dosage: 10 MG, UNK
     Route: 058

REACTIONS (10)
  - Neutrophil count decreased [Unknown]
  - Thrombocytopenia [Unknown]
  - Leukopenia [Unknown]
  - Neutrophil count increased [Unknown]
  - Eosinophil count decreased [Unknown]
  - Investigation abnormal [Unknown]
  - Red blood cell sedimentation rate increased [Unknown]
  - Lymphocyte count decreased [Unknown]
  - Pyrexia [Unknown]
  - Monocyte count decreased [Unknown]

NARRATIVE: CASE EVENT DATE: 20190108
